FAERS Safety Report 18173458 (Version 1)
Quarter: 2020Q3

REPORT INFORMATION
  Report Type: Spontaneous
  Country: US (occurrence: US)
  Receive Date: 20200820
  Receipt Date: 20200820
  Transmission Date: 20201103
  Serious: No
  Sender: FDA-Public Use
  Company Number: US-AUROBINDO-AUR-APL-2019-052043

PATIENT
  Sex: Female

DRUGS (1)
  1. TERBINAFINE HYDROCHLORIDE TABLETS 250MG [Suspect]
     Active Substance: TERBINAFINE HYDROCHLORIDE
     Indication: PRODUCT USED FOR UNKNOWN INDICATION
     Dosage: 01 TABLET PER DAY BUT TOOK 03 TABLETS PER DAY
     Route: 065

REACTIONS (3)
  - Anxiety [Unknown]
  - Extra dose administered [Unknown]
  - Taste disorder [Unknown]
